FAERS Safety Report 17616308 (Version 1)
Quarter: 2020Q2

REPORT INFORMATION
  Report Type: Spontaneous
  Country: CA (occurrence: CA)
  Receive Date: 20200402
  Receipt Date: 20200402
  Transmission Date: 20200713
  Serious: Yes (Life-Threatening, Hospitalization)
  Sender: FDA-Public Use
  Company Number: CA-STRIDES ARCOLAB LIMITED-2020SP004360

PATIENT
  Age: 77 Year
  Sex: Female

DRUGS (3)
  1. RADIOACTIVE IODINE SOLUTION [Suspect]
     Active Substance: SODIUM IODIDE I-131
     Indication: INVESTIGATION
     Dosage: UNK
     Route: 065
  2. PIPERACILLIN/TAZOBACTAM [Suspect]
     Active Substance: PIPERACILLIN SODIUM\TAZOBACTAM SODIUM
     Indication: CHOLANGITIS
     Dosage: UNK
     Route: 065
  3. IBUPROFEN. [Suspect]
     Active Substance: IBUPROFEN
     Indication: CHOLANGITIS
     Dosage: UNK, (AS NEEDED)
     Route: 065

REACTIONS (9)
  - Pustule [Recovered/Resolved]
  - Acute generalised exanthematous pustulosis [Recovered/Resolved]
  - Erythema [Recovered/Resolved]
  - Rash [Recovered/Resolved]
  - Distributive shock [Recovered/Resolved]
  - Skin exfoliation [Recovered/Resolved]
  - Acute kidney injury [Recovered/Resolved]
  - Toxic epidermal necrolysis [Recovered/Resolved]
  - Blister [Recovered/Resolved]
